FAERS Safety Report 11121015 (Version 1)
Quarter: 2015Q2

REPORT INFORMATION
  Report Type: Spontaneous
  Country: US (occurrence: None)
  Receive Date: 20150515
  Receipt Date: 20150515
  Transmission Date: 20150821
  Serious: Yes (Hospitalization, Other)
  Sender: FDA-Public Use
  Company Number: 2015SA060524

PATIENT
  Sex: Female

DRUGS (4)
  1. HUMALOG [Suspect]
     Active Substance: INSULIN LISPRO
     Indication: TYPE 2 DIABETES MELLITUS
     Route: 058
     Dates: start: 2000
  2. NOVOLOG [Concomitant]
     Active Substance: INSULIN ASPART
  3. LANTUS [Suspect]
     Active Substance: INSULIN GLARGINE
  4. HUMULIN NOS [Concomitant]
     Active Substance: INSULIN HUMAN

REACTIONS (9)
  - Renal impairment [None]
  - Blood glucose abnormal [None]
  - Scar [None]
  - Drug ineffective [None]
  - Aphasia [None]
  - Paralysis [None]
  - Diabetes mellitus inadequate control [None]
  - Insulin resistance [None]
  - Blood glucose fluctuation [None]
